FAERS Safety Report 20508275 (Version 2)
Quarter: 2022Q3

REPORT INFORMATION
  Report Type: Report from Study
  Country: US (occurrence: US)
  Receive Date: 20220223
  Receipt Date: 20220721
  Transmission Date: 20221027
  Serious: Yes (Other)
  Sender: FDA-Public Use
  Company Number: US-BAYER-2022A026869

PATIENT
  Age: 38 Year
  Sex: Female
  Weight: 55.782 kg

DRUGS (1)
  1. GADOBUTROL [Suspect]
     Active Substance: GADOBUTROL
     Indication: Uterine leiomyoma
     Dosage: UNK, ONCE

REACTIONS (3)
  - Gadolinium deposition disease [Not Recovered/Not Resolved]
  - Nontherapeutic agent urine positive [None]
  - Cytokine increased [None]
